FAERS Safety Report 8535029-5 (Version None)
Quarter: 2012Q3

REPORT INFORMATION
  Report Type: 
  Country: None (occurrence: None)
  Receive Date: 20120724
  Receipt Date: 20120712
  Transmission Date: 20120928
  Serious: Yes (Other)
  Sender: FDA-Public Use
  Company Number: US-PFIZER INC-2012047466

PATIENT
  Sex: Female
  Weight: 75 kg

DRUGS (15)
  1. FUROSEMIDE [Concomitant]
     Indication: OEDEMA
     Dosage: UNK
     Dates: start: 20110830
  2. OXYCONTIN [Concomitant]
     Indication: PAIN
     Dosage: UNK
     Dates: start: 20110707
  3. SPIRIVA [Concomitant]
     Indication: DYSPNOEA
     Dosage: UNK
     Dates: start: 20111020
  4. ZANTAC [Concomitant]
     Indication: DYSPEPSIA
     Dosage: UNK
     Dates: start: 20110331
  5. CLOBETASOL PROPIONATE [Concomitant]
     Indication: SWELLING
     Dosage: UNK
     Dates: start: 20110630
  6. CRIZOTINIB [Suspect]
     Indication: NON-SMALL CELL LUNG CANCER
     Dosage: 250 MG, 2X/DAY
     Route: 048
     Dates: start: 20110708
  7. POTASSIUM CHLORIDE [Concomitant]
     Indication: OEDEMA
     Dosage: UNK
     Dates: start: 20110830
  8. ALPRAZOLAM [Concomitant]
     Indication: ANXIETY
     Dosage: UNK
     Dates: start: 20110331
  9. PANTOPRAZOLE SODIUM [Concomitant]
     Indication: DYSPEPSIA
     Dosage: UNK
     Dates: start: 20110630
  10. PROAIR HFA [Concomitant]
     Indication: DYSPNOEA
     Dosage: UNK
     Dates: start: 20111020
  11. ASTEPRO [Concomitant]
     Indication: MULTIPLE ALLERGIES
     Dosage: UNK
     Dates: start: 20110331
  12. BACLOFEN [Concomitant]
     Indication: TREMOR
     Dosage: UNK
     Dates: start: 20110908
  13. FLUOXETINE [Concomitant]
     Indication: ANXIETY
     Dosage: UNK
     Dates: start: 20110331
  14. OXYCODONE [Concomitant]
     Indication: PAIN
     Dosage: UNK
     Dates: start: 20110707
  15. COUMADIN [Concomitant]
     Indication: PULMONARY EMBOLISM
     Dosage: UNK
     Dates: start: 20110331

REACTIONS (2)
  - NEOPLASM MALIGNANT [None]
  - SQUAMOUS CELL CARCINOMA OF SKIN [None]
